FAERS Safety Report 5233845-9 (Version None)
Quarter: 2007Q1

REPORT INFORMATION
  Report Type: 
  Country: None (occurrence: None)
  Receive Date: 20061208
  Receipt Date: 20060317
  Transmission Date: 20070707
  Serious: Yes (Other)
  Sender: FDA-Public Use
  Company Number: 2006UW04605

PATIENT
  Age: 66 Year
  Sex: Female
  Weight: 117.93 kg

DRUGS (7)
  1. CRESTOR [Suspect]
     Indication: BLOOD CHOLESTEROL INCREASED
     Dosage: 10 MG ONCE PO
     Route: 048
  2. TYLENOL [Concomitant]
  3. MONOPRIL [Concomitant]
  4. ASPIRIN [Concomitant]
  5. GLUCOPHAGE [Concomitant]
  6. HYDROCHLOROTHIAZIDE W/TRIAMTERENE [Concomitant]
  7. INSULIN [Concomitant]

REACTIONS (2)
  - CHILLS [None]
  - FEELING HOT [None]
